FAERS Safety Report 6335797-7 (Version None)
Quarter: 2009Q3

REPORT INFORMATION
  Report Type: 
  Country: None (occurrence: None)
  Receive Date: 20090828
  Receipt Date: 20090818
  Transmission Date: 20100115
  Serious: Yes (Other)
  Sender: FDA-Public Use
  Company Number: ADR13552009

PATIENT
  Sex: Male

DRUGS (3)
  1. CITALOPRAM HYDROBROMIDE [Suspect]
     Dosage: 30MG ORAL
     Route: 048
     Dates: start: 20040616, end: 20060201
  2. BECOTIDE [Concomitant]
  3. SALBUTAMOL [Concomitant]

REACTIONS (1)
  - HYPOKALAEMIA [None]
